FAERS Safety Report 25915590 (Version 1)
Quarter: 2025Q4

REPORT INFORMATION
  Report Type: Spontaneous
  Country: US (occurrence: US)
  Receive Date: 20251013
  Receipt Date: 20251013
  Transmission Date: 20260117
  Serious: Yes (Other)
  Sender: MYLAN
  Company Number: US-MYLANLABS-2025M1086501

PATIENT
  Age: 46 Year
  Sex: Male

DRUGS (6)
  1. PREDNISONE [Suspect]
     Active Substance: PREDNISONE
     Indication: Dermatitis atopic
     Dosage: UNK
  2. PREDNISONE [Suspect]
     Active Substance: PREDNISONE
     Indication: Neurodermatitis
  3. CYCLOSPORINE [Suspect]
     Active Substance: CYCLOSPORINE
     Indication: Dermatitis atopic
     Dosage: 100 MILLIGRAM, BID
  4. CYCLOSPORINE [Suspect]
     Active Substance: CYCLOSPORINE
     Indication: Neurodermatitis
  5. RUXOLITINIB [Suspect]
     Active Substance: RUXOLITINIB
     Indication: Dermatitis atopic
     Dosage: UNK
  6. RUXOLITINIB [Suspect]
     Active Substance: RUXOLITINIB
     Indication: Neurodermatitis

REACTIONS (2)
  - Treatment failure [Unknown]
  - Hypertension [Unknown]
